FAERS Safety Report 11803889 (Version 6)
Quarter: 2016Q1

REPORT INFORMATION
  Report Type: Spontaneous
  Country: JP (occurrence: JP)
  Receive Date: 20151204
  Receipt Date: 20160311
  Transmission Date: 20160525
  Serious: Yes (Hospitalization)
  Sender: FDA-Public Use
  Company Number: JP-009507513-1512JPN002480

PATIENT
  Age: 62 Year
  Sex: Female

DRUGS (9)
  1. REFLEX [Suspect]
     Active Substance: MIRTAZAPINE
     Indication: INSOMNIA
  2. TRAZODONE HYDROCHLORIDE. [Concomitant]
     Active Substance: TRAZODONE HYDROCHLORIDE
     Indication: INSOMNIA
  3. METHYLMETHIONINE SULFONIUM CHLORIDE [Concomitant]
     Active Substance: METHYLMETHIONINE SULFONIUM CHLORIDE
     Indication: CHRONIC GASTRITIS
     Dosage: 25 MG, DAILY DOSE
     Route: 048
     Dates: start: 20130124
  4. REFLEX [Suspect]
     Active Substance: MIRTAZAPINE
     Indication: DEPRESSION
     Dosage: 45 MG, DAILY DOSE
     Route: 048
     Dates: start: 20121101, end: 20150225
  5. AMLODIPINE BESYLATE. [Concomitant]
     Active Substance: AMLODIPINE BESYLATE
     Indication: HYPERTENSION
     Dosage: 2.5 MG, DAILY DOSE
     Route: 048
     Dates: start: 20121210
  6. DEPAKENE [Suspect]
     Active Substance: VALPROIC ACID
     Indication: MOOD SWINGS
     Dosage: 400 MG, DAILY DOSE
     Route: 048
     Dates: start: 20121115, end: 20150101
  7. TRAZODONE HYDROCHLORIDE. [Concomitant]
     Active Substance: TRAZODONE HYDROCHLORIDE
     Indication: DEPRESSION
     Dosage: 100 MG/DAY
     Route: 048
     Dates: start: 20051004
  8. ETIZOLAM [Concomitant]
     Active Substance: ETIZOLAM
     Indication: ANXIETY
     Dosage: 0.5 MG, DAILY DOSE
     Route: 048
     Dates: start: 20121106, end: 20141227
  9. FLUNITRAZEPAM [Concomitant]
     Active Substance: FLUNITRAZEPAM
     Indication: INSOMNIA
     Dosage: 2 MG, DAILY DOSE
     Route: 048
     Dates: start: 20121217, end: 20150916

REACTIONS (2)
  - Hypomania [Recovered/Resolved]
  - Hyperammonaemia [Recovered/Resolved]

NARRATIVE: CASE EVENT DATE: 201412
